FAERS Safety Report 7418629-5 (Version None)
Quarter: 2011Q2

REPORT INFORMATION
  Report Type: 
  Country: None (occurrence: None)
  Receive Date: 20110415
  Receipt Date: 20101029
  Transmission Date: 20111010
  Serious: Yes (Other)
  Sender: FDA-Public Use
  Company Number: US-BAYER-201038455NA

PATIENT
  Age: 39 Year
  Sex: Female
  Weight: 68.027 kg

DRUGS (3)
  1. YAZ [Suspect]
     Indication: PRODUCT USED FOR UNKNOWN INDICATION
     Dosage: UNK UNK, QD
     Route: 048
     Dates: start: 20080801, end: 20090815
  2. HORMONES AND RELATED AGENTS [Suspect]
  3. YASMIN [Suspect]
     Indication: PRODUCT USED FOR UNKNOWN INDICATION
     Dosage: UNK UNK, QD
     Route: 048
     Dates: start: 20080801, end: 20090815

REACTIONS (2)
  - FOCAL NODULAR HYPERPLASIA [None]
  - EMOTIONAL DISTRESS [None]
